FAERS Safety Report 11056920 (Version 1)
Quarter: 2015Q2

REPORT INFORMATION
  Report Type: Spontaneous
  Country: US (occurrence: None)
  Receive Date: 20150420
  Receipt Date: 20150420
  Transmission Date: 20150821
  Serious: Yes (Other)
  Sender: FDA-Public Use
  Company Number: AEGR0001004

PATIENT
  Age: 76 Year
  Sex: Male
  Weight: 93.9 kg

DRUGS (13)
  1. FINASTERIDE. [Concomitant]
     Active Substance: FINASTERIDE
  2. OMEPRAZOLE. [Concomitant]
     Active Substance: OMEPRAZOLE
  3. ASPIRIN. [Concomitant]
     Active Substance: ASPIRIN
  4. MULTIVITAMIN (VITAMINS NOS) [Concomitant]
     Active Substance: VITAMINS
  5. VITAMINE E (TOCOPHERYL ACETATE) [Concomitant]
  6. METOPROLOL (METOPROLOL TARTRATE) [Concomitant]
     Active Substance: METOPROLOL TARTRATE
  7. ALLEGRA (FEXOFENADINE HYDROCHLORIDE) [Concomitant]
  8. CO Q10 (UBIDECARENONE) [Concomitant]
  9. FLOMAX [Concomitant]
     Active Substance: TAMSULOSIN HYDROCHLORIDE
  10. OMEGA 3-6-9 (FISH OIL TOCOPHEROL) [Concomitant]
  11. WELCHOL (COLESEVELAM HYDROCHLORIDE) [Concomitant]
  12. JUXTAPID [Suspect]
     Active Substance: LOMITAPIDE MESYLATE
     Indication: TYPE IIA HYPERLIPIDAEMIA
     Route: 048
     Dates: start: 20140805, end: 20141008
  13. BENICAR [Concomitant]
     Active Substance: OLMESARTAN MEDOXOMIL

REACTIONS (5)
  - Flatulence [None]
  - Liver function test abnormal [None]
  - Inappropriate schedule of drug administration [None]
  - Abdominal distension [None]
  - Diarrhoea [None]

NARRATIVE: CASE EVENT DATE: 2014
